FAERS Safety Report 7479066 (Version 3)
Quarter: 2013Q1

REPORT INFORMATION
  Report Type: Report from Study
  Country: JP (occurrence: JP)
  Receive Date: 20100716
  Receipt Date: 20130103
  Transmission Date: 20140127
  Serious: Yes (Death, Life-Threatening, Hospitalization)
  Sender: FDA-Public Use
  Company Number: JP-BAYER-201013449BYL

PATIENT
  Age: 77 Year
  Sex: Female
  Weight: 53.3 kg

DRUGS (11)
  1. SORAFENIB [Suspect]
     Indication: HEPATOCELLULAR CARCINOMA
     Dosage: 400MG QD
     Route: 048
     Dates: start: 20100617, end: 20100622
  2. CIRCANETTEN [Concomitant]
     Dosage: SINCE BEFORE ADMINISTRATION
     Route: 048
     Dates: end: 20100623
  3. ZYRTEC [Concomitant]
     Dosage: SINCE BEFORE ADMINISTRATION
     Route: 048
     Dates: end: 20100623
  4. ADALAT CR [Concomitant]
     Dosage: SINCE BEFORE ADMINISTRATION
     Route: 048
     Dates: end: 20100623
  5. PARIET [Concomitant]
     Dosage: SINCE BEFORE ADMINISTRATION
     Route: 048
     Dates: end: 20100623
  6. MUCOSTA [Concomitant]
     Indication: GASTRITIS PROPHYLAXIS
     Dosage: 300 MG (DAILY DOSE), , ORAL
     Route: 048
     Dates: start: 20100618, end: 20100623
  7. PURSENNID [Concomitant]
     Dosage: SINCE BEFORE ADMINISTRATION
     Route: 048
     Dates: end: 20100623
  8. MAGNESIUM OXIDE [Concomitant]
     Dosage: SINCE BEFORE ADMINISTRATION
     Route: 048
     Dates: end: 20100623
  9. URSO [Concomitant]
     Dosage: SINCE BEFORE ADMINISTRATION
     Route: 048
     Dates: end: 20100623
  10. LOXONIN [Concomitant]
     Dosage: SINCE BEFORE ADMINISTRATION
     Route: 048
     Dates: end: 20100623
  11. AMOBAN [Concomitant]
     Dosage: SINCE BEFORE ADMINISTRATION
     Route: 048
     Dates: end: 20100623

REACTIONS (8)
  - Metabolic encephalopathy [Fatal]
  - Hyperammonaemia [Fatal]
  - Respiratory failure [Recovered/Resolved]
  - Rectal ulcer haemorrhage [Recovering/Resolving]
  - Hypoalbuminaemia [Fatal]
  - Pleural effusion [Recovering/Resolving]
  - Arthritis [Recovering/Resolving]
  - Hyperammonaemia [Recovered/Resolved]
